FAERS Safety Report 9728072 (Version 1)
Quarter: 2013Q4

REPORT INFORMATION
  Report Type: Report from Study
  Country: DE (occurrence: DE)
  Receive Date: 20131204
  Receipt Date: 20131204
  Transmission Date: 20140711
  Serious: No
  Sender: FDA-Public Use
  Company Number: PHHY2013DE139429

PATIENT
  Sex: Male

DRUGS (9)
  1. AMN107 [Suspect]
     Indication: CHRONIC MYELOID LEUKAEMIA
     Dosage: 600 MG
     Route: 048
     Dates: start: 20120831
  2. AMN107 [Suspect]
     Dosage: 400 MG
     Route: 048
     Dates: start: 20130517
  3. NOVALGIN [Concomitant]
     Dosage: 30 DRP, PRN
     Dates: start: 20120801, end: 20120913
  4. ALFASON [Concomitant]
     Dates: start: 20121011, end: 20121025
  5. CANDESARTAN [Concomitant]
     Dosage: 4 MG, QD
     Dates: start: 20130107
  6. L-THYROXIN [Concomitant]
     Dates: start: 20130305
  7. L-THYROXIN [Concomitant]
     Dosage: 75 MG
     Dates: start: 20130617
  8. AMLODIPINE [Concomitant]
     Dosage: 7.5 MG,
     Dates: start: 20130416
  9. AMLODIPINE [Concomitant]
     Dosage: 7.5 MG
     Dates: start: 20130617

REACTIONS (1)
  - Oedema peripheral [Recovered/Resolved]
